FAERS Safety Report 18276538 (Version 4)
Quarter: 2020Q4

REPORT INFORMATION
  Report Type: Report from Study
  Country: None (occurrence: AU)
  Receive Date: 20200917
  Receipt Date: 20201201
  Transmission Date: 20210113
  Serious: Yes (Hospitalization, Other)
  Sender: FDA-Public Use
  Company Number: AU-ABBVIE-20K-008-3567702-00

PATIENT
  Age: 69 Year
  Sex: Male
  Weight: 114 kg

DRUGS (19)
  1. SERTRALINE HYDROCHLORIDE. [Concomitant]
     Active Substance: SERTRALINE HYDROCHLORIDE
     Indication: DEPRESSION
     Dosage: MANE
     Route: 048
     Dates: start: 2010
  2. SINEMET [Concomitant]
     Active Substance: CARBIDOPA\LEVODOPA
     Indication: PARKINSON^S DISEASE
     Dosage: CR ?200/50 MG ?NOCTE
     Route: 048
     Dates: start: 201004, end: 201911
  3. VIAGRA [Concomitant]
     Active Substance: SILDENAFIL CITRATE
     Indication: ERECTILE DYSFUNCTION
     Route: 048
     Dates: start: 201807
  4. PERINDOPRIL [Concomitant]
     Active Substance: PERINDOPRIL
     Indication: HYPERTENSION
     Dosage: MANE
     Route: 048
     Dates: start: 2012
  5. DUODOPA [Suspect]
     Active Substance: CARBIDOPA\LEVODOPA
     Indication: PARKINSON^S DISEASE
     Dosage: MD: 8.3 ML, CD: 5.3ML/H, ED: 0.5 ML PER DAY, DAILY TREATMENT DURATION:16 HR. INTRADUODENAL
     Route: 050
     Dates: start: 20170913
  6. PARACETAMOL [Concomitant]
     Active Substance: ACETAMINOPHEN
     Indication: PAIN
     Route: 048
     Dates: start: 20170323
  7. AMLODIPINE [Concomitant]
     Active Substance: AMLODIPINE BESYLATE
     Indication: HYPERTENSION
     Dosage: MANE
     Route: 048
     Dates: start: 2012
  8. PARACETAMOL FORTE RAFFO [Concomitant]
     Indication: PYREXIA
     Dosage: 1000/60 MG
     Route: 048
     Dates: start: 202001
  9. AMANTADINE. [Concomitant]
     Active Substance: AMANTADINE HYDROCHLORIDE
     Indication: INFECTION PROPHYLAXIS
     Route: 048
     Dates: start: 20171204
  10. PARACETAMOL FORTE RAFFO [Concomitant]
     Indication: PAIN
  11. VITAMIN B12 [Concomitant]
     Active Substance: CYANOCOBALAMIN
     Indication: PROPHYLAXIS
     Route: 048
     Dates: start: 201803, end: 202005
  12. INSOLAR [Concomitant]
     Indication: VITAMIN SUPPLEMENTATION
     Route: 048
     Dates: start: 2017, end: 202005
  13. DUODOPA [Suspect]
     Active Substance: CARBIDOPA\LEVODOPA
  14. SINEMET [Concomitant]
     Active Substance: CARBIDOPA\LEVODOPA
     Dosage: CR ?400/100 MG ?NOCTE
     Route: 048
     Dates: start: 201911
  15. PARACETAMOL [Concomitant]
     Active Substance: ACETAMINOPHEN
     Indication: PYREXIA
  16. DOCUSATE;SENNA [Concomitant]
     Active Substance: DOCUSATE\SENNOSIDES
     Indication: CONSTIPATION
     Dosage: 50/8 MG
     Route: 048
     Dates: start: 2017
  17. CLONAZEPAM. [Concomitant]
     Active Substance: CLONAZEPAM
     Indication: DEPRESSION
     Dosage: NOCTE
     Route: 048
     Dates: start: 201702
  18. PRAMIPEXOLE. [Concomitant]
     Active Substance: PRAMIPEXOLE
     Indication: PARKINSON^S DISEASE
     Dosage: NOCTE
     Route: 048
     Dates: start: 2016
  19. ALLOPURINOL. [Concomitant]
     Active Substance: ALLOPURINOL
     Indication: METABOLIC DISORDER PROPHYLAXIS
     Dosage: MANE
     Route: 048
     Dates: start: 2007

REACTIONS (2)
  - Joint instability [Recovered/Resolved]
  - Arthritis [Recovered/Resolved]

NARRATIVE: CASE EVENT DATE: 20200428
